FAERS Safety Report 21997292 (Version 1)
Quarter: 2023Q1

REPORT INFORMATION
  Report Type: Spontaneous
  Country: US (occurrence: US)
  Receive Date: 20230216
  Receipt Date: 20230216
  Transmission Date: 20230418
  Serious: Yes (Other)
  Sender: FDA-Public Use
  Company Number: US-STRIDES ARCOLAB LIMITED-2022SP015745

PATIENT
  Age: 6 Decade
  Sex: Female

DRUGS (2)
  1. ETOPOSIDE [Suspect]
     Active Substance: ETOPOSIDE
     Indication: Neuroendocrine carcinoma of the skin
     Dosage: UNK, CYCLICAL; FOR 4 CYCLES
     Route: 065
  2. CISPLATIN [Suspect]
     Active Substance: CISPLATIN
     Indication: Neuroendocrine carcinoma of the skin
     Dosage: UNK, CYCLICAL; FOR 4 CYCLES
     Route: 065

REACTIONS (2)
  - Therapy partial responder [Unknown]
  - Off label use [Unknown]
